FAERS Safety Report 5956494-3 (Version None)
Quarter: 2008Q4

REPORT INFORMATION
  Report Type: 
  Country: None (occurrence: None)
  Receive Date: 20081118
  Receipt Date: 20081112
  Transmission Date: 20090506
  Serious: Yes (Other)
  Sender: FDA-Public Use
  Company Number: A0755985A

PATIENT
  Age: 44 Year
  Sex: Female

DRUGS (2)
  1. PAXIL CR [Suspect]
     Indication: PANIC DISORDER
     Dosage: 25MG PER DAY
     Route: 048
     Dates: start: 20060201, end: 20070201
  2. NO CONCURRENT MEDICATION [Concomitant]

REACTIONS (8)
  - ABDOMINAL DISTENSION [None]
  - BLOOD BILIRUBIN INCREASED [None]
  - BLOOD CHOLESTEROL INCREASED [None]
  - FATIGUE [None]
  - INCREASED APPETITE [None]
  - LIBIDO DECREASED [None]
  - NIGHT SWEATS [None]
  - WEIGHT INCREASED [None]
